FAERS Safety Report 10662840 (Version 1)
Quarter: 2014Q4

REPORT INFORMATION
  Report Type: Spontaneous
  Country: US (occurrence: None)
  Receive Date: 20141208
  Receipt Date: 20141208
  Transmission Date: 20150529
  Serious: No
  Sender: FDA-Public Use
  Company Number: 2014TUS007148

PATIENT
  Sex: Female

DRUGS (8)
  1. BRINTELLIX [Suspect]
     Active Substance: VORTIOXETINE HYDROBROMIDE
     Indication: BIPOLAR DISORDER
     Route: 048
  2. SEROQUEL(QUETIAPINE FUMARATE) [Concomitant]
  3. FIORINAL/(ACETYLSALICYLIC ACID, BUTALBITAL, CAFFEINE, PHENACETIN) [Concomitant]
  4. BRINTELLIX [Suspect]
     Active Substance: VORTIOXETINE HYDROBROMIDE
     Indication: DEPRESSION
     Route: 048
  5. GABAPENTIN(GABAPENTIN) [Concomitant]
  6. SYNTHROID(LEVOTHYROXINE SODIUM) [Concomitant]
  7. DIAZPEAM(DIAZEPAM) [Concomitant]
  8. HYDROXYZINE POMAOATE (HYDROXYZINE EMBONATE) [Concomitant]

REACTIONS (1)
  - Liver function test abnormal [None]
